FAERS Safety Report 10220091 (Version 2)
Quarter: 2014Q2

REPORT INFORMATION
  Report Type: Spontaneous
  Country: US (occurrence: US)
  Receive Date: 20140605
  Receipt Date: 20140626
  Transmission Date: 20141212
  Serious: Yes (Death, Other)
  Sender: FDA-Public Use
  Company Number: US-GILEAD-2014-0104230

PATIENT
  Age: 68 Year
  Sex: Female

DRUGS (5)
  1. LETAIRIS [Suspect]
     Indication: SYSTEMIC SCLEROSIS
     Dosage: 5 MG, QD
     Route: 065
     Dates: start: 20140430, end: 20140502
  2. POTASSIUM CHLORIDE [Concomitant]
  3. FUROSEMIDE [Concomitant]
  4. LISINOPRIL [Concomitant]
  5. FLUOXETINE [Concomitant]

REACTIONS (1)
  - Death [Fatal]
